FAERS Safety Report 5451824-3 (Version None)
Quarter: 2007Q3

REPORT INFORMATION
  Report Type: 
  Country: None (occurrence: None)
  Receive Date: 20070806
  Receipt Date: 20070212
  Transmission Date: 20080115
  Serious: Yes (Other)
  Sender: FDA-Public Use
  Company Number: 34393

PATIENT
  Age: 20 Year
  Sex: Female
  Weight: 41.7309 kg

DRUGS (12)
  1. MIDAZOLAM HCL [Suspect]
     Indication: SEDATION
     Dosage: 2 MG 1-4 MIN/IV (TOTAL 12 MG)
     Dates: start: 20070124
  2. MIDAZOLAM HCL [Suspect]
     Indication: SEDATION
  3. ZELNORM [Concomitant]
  4. VALIUM [Concomitant]
  5. CELEXA [Concomitant]
  6. ACIPHEX [Concomitant]
  7. PHENERGAN HCL [Concomitant]
  8. REGLAN [Concomitant]
  9. SMOKES [Concomitant]
  10. FENTANYL [Concomitant]
  11. MARIJUANA [Concomitant]
  12. ALCOHOL [Concomitant]

REACTIONS (1)
  - DRUG INEFFECTIVE [None]
